FAERS Safety Report 11326719 (Version 1)
Quarter: 2015Q3

REPORT INFORMATION
  Report Type: Spontaneous
  Country: US (occurrence: US)
  Receive Date: 20150731
  Receipt Date: 20150731
  Transmission Date: 20151125
  Serious: Yes (Hospitalization)
  Sender: FDA-Public Use
  Company Number: US-ROCHE-ITM201506IM018469

PATIENT
  Age: 86 Year
  Sex: Female
  Weight: 52.66 kg

DRUGS (3)
  1. PIRFENIDONE [Suspect]
     Active Substance: PIRFENIDONE
     Indication: IDIOPATHIC PULMONARY FIBROSIS
     Dosage: 3 CAPSULE TID
     Route: 048
     Dates: start: 20150403
  2. PIRFENIDONE [Suspect]
     Active Substance: PIRFENIDONE
     Dosage: 1 PILL 3 TIMES A DAY
     Route: 048
     Dates: start: 20150612, end: 20150707
  3. WARFARIN [Concomitant]
     Active Substance: WARFARIN

REACTIONS (8)
  - Gastrointestinal sounds abnormal [Unknown]
  - Decreased appetite [Not Recovered/Not Resolved]
  - Head injury [Unknown]
  - Spinal column injury [Unknown]
  - Malaise [Unknown]
  - Fall [Unknown]
  - Diarrhoea [Unknown]
  - Abdominal discomfort [Unknown]

NARRATIVE: CASE EVENT DATE: 20150515
